FAERS Safety Report 5622295-9 (Version None)
Quarter: 2008Q1

REPORT INFORMATION
  Report Type: 
  Country: None (occurrence: None)
  Receive Date: 20080206
  Receipt Date: 20080128
  Transmission Date: 20080703
  Serious: Yes (Hospitalization)
  Sender: FDA-Public Use
  Company Number: 2007BI024679

PATIENT
  Age: 45 Year
  Sex: Female

DRUGS (2)
  1. TYSABRI [Suspect]
     Indication: RELAPSING-REMITTING MULTIPLE SCLEROSIS
     Dosage: 300 MG;QM;IV
     Route: 042
     Dates: start: 20071115, end: 20071119
  2. BISOHEXAL [Concomitant]

REACTIONS (5)
  - ARTHRALGIA [None]
  - BODY TEMPERATURE INCREASED [None]
  - HYPERSENSITIVITY [None]
  - NAUSEA [None]
  - VOMITING [None]
